FAERS Safety Report 6728273-0 (Version None)
Quarter: 2010Q2

REPORT INFORMATION
  Report Type: 
  Country: None (occurrence: None)
  Receive Date: 20100517
  Receipt Date: 20100504
  Transmission Date: 20101027
  Serious: Yes (Death)
  Sender: FDA-Public Use
  Company Number: US-WATSON-2010-06190

PATIENT
  Age: 50 Year
  Sex: Male

DRUGS (2)
  1. LORAZEPAM [Suspect]
     Indication: ACCIDENTAL OVERDOSE
     Dosage: 2MG/MIN
     Route: 042
  2. LORAZEPAM [Suspect]
     Indication: GRAND MAL CONVULSION

REACTIONS (4)
  - ACCIDENTAL OVERDOSE [None]
  - DRUG ADMINISTRATION ERROR [None]
  - INCORRECT DRUG ADMINISTRATION RATE [None]
  - LACTIC ACIDOSIS [None]
